FAERS Safety Report 7716329-5 (Version None)
Quarter: 2011Q3

REPORT INFORMATION
  Report Type: 
  Country: None (occurrence: None)
  Receive Date: 20110829
  Receipt Date: 20110818
  Transmission Date: 20111222
  Serious: Yes (Other)
  Sender: FDA-Public Use
  Company Number: PHEH2011US01910

PATIENT
  Sex: Female

DRUGS (14)
  1. ZOMETA [Suspect]
     Dosage: UNK UKN, UNK
  2. PRILOSEC [Concomitant]
  3. ACETAMINOPHEN AND HYDROCODONE BITARTRATE [Concomitant]
  4. PROZAC [Concomitant]
  5. EXEMESTANE [Concomitant]
  6. ATIVAN [Concomitant]
  7. BIOTIN [Concomitant]
  8. NEURONTIN [Concomitant]
  9. TRAZODONE HYDROCHLORIDE [Concomitant]
  10. CALCIUM CARBONATE [Concomitant]
  11. VITAMIN B-12 [Concomitant]
  12. DOCUSATE SODIUM [Concomitant]
  13. SEROQUEL [Concomitant]
  14. VITAMIN D [Concomitant]

REACTIONS (8)
  - COUGH [None]
  - MYALGIA [None]
  - BONE PAIN [None]
  - CHEST DISCOMFORT [None]
  - ARTHRALGIA [None]
  - ANXIETY [None]
  - LOSS OF CONSCIOUSNESS [None]
  - DYSPNOEA [None]
